FAERS Safety Report 4530070-1 (Version None)
Quarter: 2004Q4

REPORT INFORMATION
  Report Type: 
  Country: None (occurrence: None)
  Receive Date: 20041215
  Receipt Date: 20041202
  Transmission Date: 20050328
  Serious: Yes (Hospitalization)
  Sender: FDA-Public Use
  Company Number: 2004103390

PATIENT
  Age: 66 Year
  Sex: Female
  Weight: 68.4932 kg

DRUGS (10)
  1. CELECOXIB(CELECOXIB) [Suspect]
     Indication: ARTHRALGIA
     Dosage: (1 D), ORAL
     Route: 048
  2. BEXTRA [Suspect]
     Indication: ARTHRALGIA
     Dosage: 10 MG (10 MG, 1 IN 1 D), ORAL
     Route: 048
  3. MORPHINE INJECTION (MORPHINE SULFATE) [Suspect]
     Indication: POST PROCEDURAL PAIN
     Dates: start: 20041101, end: 20041101
  4. ROFECOXIB [Suspect]
     Indication: ARTHRALGIA
  5. OXYCODONE HYDROCHLORIDE AND ACETAMINOPHEN [Suspect]
     Indication: PAIN
     Dosage: (6 IN 1 AS NECESSARY)
     Dates: start: 20041101, end: 20041201
  6. METOPROLOL TARTRATE [Concomitant]
  7. TRIAMTERENE (TRIAMTERENE) [Concomitant]
  8. ATORVASTATIN 9ATORVASTATIN) [Concomitant]
  9. MULTIVITAMINS (ASCORBIC ACID, ERGOCALCIFEROL, FOLIC ACID, NICOTINAMIDE [Concomitant]
  10. ALL OTHER THERAPEUTIC PROUCTS (ALL OTHER THERAPETUIC PRODUCTS) [Concomitant]

REACTIONS (6)
  - ACTIVITIES OF DAILY LIVING IMPAIRED [None]
  - DRUG INEFFECTIVE [None]
  - LOCALISED OSTEOARTHRITIS [None]
  - MEDICAL DEVICE COMPLICATION [None]
  - MEMORY IMPAIRMENT [None]
  - POST PROCEDURAL PAIN [None]
